FAERS Safety Report 10577472 (Version 1)
Quarter: 2014Q4

REPORT INFORMATION
  Report Type: Spontaneous
  Country: AU (occurrence: AU)
  Receive Date: 20141111
  Receipt Date: 20141111
  Transmission Date: 20150529
  Serious: Yes (Other)
  Sender: FDA-Public Use
  Company Number: AU-SYMPLMED PHARMACEUTICALS-2014SYM00157

PATIENT
  Age: 26 Year
  Sex: Female

DRUGS (2)
  1. ACEON [Suspect]
     Active Substance: PERINDOPRIL ERBUMINE
     Indication: PROPHYLAXIS
     Dosage: UNK MG, QD
     Route: 048
     Dates: start: 20120201, end: 20120212
  2. ACEON [Suspect]
     Active Substance: PERINDOPRIL ERBUMINE
     Dosage: 34 DF, SINGLE
     Route: 048
     Dates: start: 20120213, end: 20120213

REACTIONS (4)
  - Intentional overdose [Recovered/Resolved]
  - Partner stress [None]
  - Exposure via ingestion [None]
  - Suicide attempt [Recovered/Resolved]

NARRATIVE: CASE EVENT DATE: 20120213
